FAERS Safety Report 4901542-2 (Version None)
Quarter: 2006Q1

REPORT INFORMATION
  Report Type: 
  Country: None (occurrence: None)
  Receive Date: 20060206
  Receipt Date: 20050125
  Transmission Date: 20060701
  Serious: No
  Sender: FDA-Public Use
  Company Number: US-BRISTOL-MYERS SQUIBB COMPANY-12838850

PATIENT
  Age: 51 Year
  Sex: Female

DRUGS (8)
  1. TAXOL [Suspect]
     Indication: OVARIAN CANCER
     Route: 042
     Dates: start: 20041220, end: 20041220
  2. CARBOPLATIN [Suspect]
     Indication: OVARIAN CANCER
     Route: 042
     Dates: start: 20041220, end: 20041220
  3. GEMZAR [Concomitant]
     Route: 042
     Dates: start: 20050113, end: 20050113
  4. BENADRYL [Concomitant]
     Route: 040
     Dates: start: 20041220, end: 20041220
  5. TAGAMET [Concomitant]
     Dates: start: 20041220, end: 20041220
  6. ALOXI [Concomitant]
     Route: 040
     Dates: start: 20041220, end: 20050113
  7. DECADRON PHOSPHATE [Concomitant]
     Route: 040
     Dates: start: 20041220, end: 20050113
  8. HEPARIN [Concomitant]
     Route: 040
     Dates: start: 20041220, end: 20050113

REACTIONS (5)
  - ANXIETY [None]
  - FATIGUE [None]
  - HEADACHE [None]
  - INSOMNIA [None]
  - NEUROPATHY PERIPHERAL [None]
